FAERS Safety Report 8321957-2 (Version None)
Quarter: 2012Q2

REPORT INFORMATION
  Report Type: 
  Country: None (occurrence: None)
  Receive Date: 20120430
  Receipt Date: 20120420
  Transmission Date: 20120825
  Serious: Yes (Hospitalization)
  Sender: FDA-Public Use
  Company Number: JP-VERTEX PHARMACEUTICALS INC.-AE-2012-003680

PATIENT
  Age: 59 Year
  Sex: Female

DRUGS (8)
  1. CYTOTEC [Concomitant]
     Route: 048
     Dates: start: 20120202, end: 20120310
  2. TELAVIC (TELAPREVIR) [Suspect]
     Indication: HEPATITIS C
     Route: 048
     Dates: start: 20120202, end: 20120229
  3. RIBAVIRIN [Concomitant]
     Route: 048
     Dates: start: 20120223, end: 20120310
  4. LOXONIN [Concomitant]
     Route: 048
     Dates: start: 20120202, end: 20120310
  5. TELAVIC (TELAPREVIR) [Suspect]
     Route: 048
     Dates: start: 20120301, end: 20120307
  6. RIBAVIRIN [Concomitant]
     Route: 048
     Dates: start: 20120216, end: 20120222
  7. PEGINTERFERON [Concomitant]
     Indication: HEPATITIS C
     Route: 058
     Dates: start: 20120202
  8. RIBAVIRIN [Concomitant]
     Indication: HEPATITIS C
     Route: 048
     Dates: start: 20120202, end: 20120215

REACTIONS (3)
  - BLOOD CREATININE INCREASED [None]
  - ANAEMIA [None]
  - DECREASED APPETITE [None]
